FAERS Safety Report 16185863 (Version 3)
Quarter: 2019Q3

REPORT INFORMATION
  Report Type: Report from Study
  Country: GB (occurrence: GB)
  Receive Date: 20190411
  Receipt Date: 20190702
  Transmission Date: 20191004
  Serious: Yes (Hospitalization, Other)
  Sender: FDA-Public Use
  Company Number: GB-JNJFOC-20190407660

PATIENT
  Age: 7 Decade
  Sex: Male

DRUGS (2)
  1. OTEZLA [Concomitant]
     Active Substance: APREMILAST
     Route: 065
  2. STELARA [Suspect]
     Active Substance: USTEKINUMAB
     Indication: PSORIASIS
     Route: 058
     Dates: start: 20190105

REACTIONS (4)
  - Hospitalisation [Unknown]
  - Angiopathy [Unknown]
  - Psoriasis [Not Recovered/Not Resolved]
  - Tuberculosis [Unknown]

NARRATIVE: CASE EVENT DATE: 2019
